FAERS Safety Report 21995292 (Version 1)
Quarter: 2023Q1

REPORT INFORMATION
  Report Type: Spontaneous
  Country: US (occurrence: None)
  Receive Date: 20230214
  Receipt Date: 20230214
  Transmission Date: 20230418
  Serious: Yes (Other)
  Sender: FDA-Public Use
  Company Number: None

PATIENT
  Age: 26 Year
  Sex: Female
  Weight: 125.1 kg

DRUGS (6)
  1. MOUNJARO [Suspect]
     Active Substance: TIRZEPATIDE
     Indication: Obesity
  2. ZOLOFT [Concomitant]
     Active Substance: SERTRALINE HYDROCHLORIDE
  3. UNSPECIFIED INGREDIENT [Concomitant]
     Active Substance: UNSPECIFIED INGREDIENT
  4. MOUNJARO [Concomitant]
     Active Substance: TIRZEPATIDE
  5. VITAMINS [Concomitant]
     Active Substance: VITAMINS
  6. VITAMIN D [Concomitant]
     Active Substance: VITAMIN D NOS

REACTIONS (4)
  - Injection site pain [None]
  - Injection site rash [None]
  - Injection site pruritus [None]
  - Injection site induration [None]

NARRATIVE: CASE EVENT DATE: 20230205
